FAERS Safety Report 22052517 (Version 1)
Quarter: 2023Q1

REPORT INFORMATION
  Report Type: Spontaneous
  Country: GB (occurrence: GB)
  Receive Date: 20230302
  Receipt Date: 20230302
  Transmission Date: 20230418
  Serious: Yes (Hospitalization, Other)
  Sender: FDA-Public Use
  Company Number: GB-ASTELLAS-2023US006660

PATIENT
  Sex: Male

DRUGS (1)
  1. XTANDI [Suspect]
     Active Substance: ENZALUTAMIDE
     Indication: Prostate cancer
     Dosage: UNK UNK, UNKNOWN FREQ.
     Route: 065
     Dates: start: 202203

REACTIONS (10)
  - Delirium [Unknown]
  - Seizure [Unknown]
  - Cognitive disorder [Unknown]
  - Dysarthria [Unknown]
  - Condition aggravated [Unknown]
  - Motor dysfunction [Recovered/Resolved]
  - Tremor [Recovered/Resolved]
  - Grip strength decreased [Recovered/Resolved]
  - Prostate cancer [Unknown]
  - Terminal state [Unknown]
